FAERS Safety Report 4849486-9 (Version None)
Quarter: 2005Q4

REPORT INFORMATION
  Report Type: 
  Country: None (occurrence: None)
  Receive Date: 20051207
  Receipt Date: 20051125
  Transmission Date: 20060501
  Serious: Yes (Death, Life-Threatening)
  Sender: FDA-Public Use
  Company Number: 2005162050

PATIENT
  Age: 67 Year
  Sex: Female

DRUGS (4)
  1. SULFASALAZINE [Suspect]
     Indication: ILL-DEFINED DISORDER
     Dosage: 6 DOSE FORMS (1 D), ORAL
     Route: 048
  2. FLAGYL [Suspect]
     Indication: ABDOMINAL ABSCESS
     Dosage: 1 D, ORAL
     Route: 048
     Dates: start: 20051014, end: 20051018
  3. ALUMINUM HYDROXIDE AND MAGNESIUM TRISILICATE [Suspect]
     Indication: ILL-DEFINED DISORDER
     Dosage: 2 DOSE FORMS (1 D), ORAL
     Route: 048
  4. AUGMENTIN [Suspect]
     Indication: ABDOMINAL ABSCESS
     Dosage: 3 DOSE FORMS (1 D), ORAL
     Route: 048
     Dates: start: 20051014, end: 20051018

REACTIONS (1)
  - TOXIC EPIDERMAL NECROLYSIS [None]
